FAERS Safety Report 19096423 (Version 2)
Quarter: 2025Q2

REPORT INFORMATION
  Report Type: Report from Study
  Country: CA (occurrence: CA)
  Receive Date: 20210406
  Receipt Date: 20250408
  Transmission Date: 20250717
  Serious: Yes (Other)
  Sender: NOVARTIS
  Company Number: CA-NOVARTISPH-NVSC2021CA074102

PATIENT

DRUGS (1)
  1. ZORTRESS [Suspect]
     Active Substance: EVEROLIMUS
     Indication: Transplant rejection
     Dosage: 1.5 MG, QD (STRENGTH: OTHER)
     Route: 065
     Dates: start: 20220324

REACTIONS (1)
  - Pulmonary toxicity [Unknown]
